FAERS Safety Report 5333970-8 (Version None)
Quarter: 2007Q2

REPORT INFORMATION
  Report Type: 
  Country: None (occurrence: None)
  Receive Date: 20070524
  Receipt Date: 20070515
  Transmission Date: 20071010
  Serious: Yes (Other)
  Sender: FDA-Public Use
  Company Number: GB-PFIZER INC-2007027425

PATIENT
  Age: 42 Year
  Sex: Female
  Weight: 84.7 kg

DRUGS (2)
  1. CHAMPIX [Suspect]
     Indication: SMOKING CESSATION THERAPY
     Route: 048
     Dates: start: 20070330, end: 20070402
  2. LEVOTHYROXINE SODIUM [Concomitant]
     Route: 048

REACTIONS (1)
  - MENSTRUATION IRREGULAR [None]
